FAERS Safety Report 8841273 (Version 2)
Quarter: 2012Q4

REPORT INFORMATION
  Report Type: 
  Country: ZA (occurrence: ZA)
  Receive Date: 20121015
  Receipt Date: 20121106
  Transmission Date: 20130627
  Serious: Yes (Life-Threatening, Other)
  Sender: FDA-Public Use
  Company Number: ZA-ASTRAZENECA-2012SE77720

PATIENT
  Age: 17140 Day
  Sex: Male
  Weight: 90 kg

DRUGS (2)
  1. DIPRIVAN [Suspect]
     Indication: ANAESTHESIA
     Route: 042
     Dates: start: 20121009, end: 20121009
  2. RAPIFEN [Concomitant]
     Indication: ANAESTHESIA
     Route: 042
     Dates: start: 20121009, end: 20121009

REACTIONS (2)
  - Hypersensitivity [Recovered/Resolved]
  - Convulsion [Recovered/Resolved]
